FAERS Safety Report 5268053-9 (Version None)
Quarter: 2007Q1

REPORT INFORMATION
  Report Type: 
  Country: None (occurrence: None)
  Receive Date: 20070316
  Receipt Date: 20070316
  Transmission Date: 20070707
  Serious: Yes (Hospitalization)
  Sender: FDA-Public Use
  Company Number: None

PATIENT
  Sex: Male
  Weight: 61.1 kg

DRUGS (4)
  1. CLOPIDOGREL [Suspect]
     Indication: CORONARY ARTERIAL STENT INSERTION
     Dosage: 75MG DAILY (PO)
     Route: 048
     Dates: start: 20050418
  2. CLOPIDOGREL [Suspect]
     Indication: CORONARY ARTERY DISEASE
     Dosage: 75MG DAILY (PO)
     Route: 048
     Dates: start: 20050418
  3. ASPIRIN [Suspect]
     Indication: CORONARY ARTERY DISEASE
     Dosage: 81 MG DAILY (PO)  } 5 YEARS DURATION
     Route: 048
  4. OMEPRAZOLE [Concomitant]

REACTIONS (2)
  - DIZZINESS [None]
  - UPPER GASTROINTESTINAL HAEMORRHAGE [None]
